FAERS Safety Report 11368850 (Version 1)
Quarter: 2015Q3

REPORT INFORMATION
  Report Type: Spontaneous
  Country: US (occurrence: US)
  Receive Date: 20150812
  Receipt Date: 20150812
  Transmission Date: 20151125
  Serious: Yes (Hospitalization)
  Sender: FDA-Public Use
  Company Number: US-ROCHE-1620519

PATIENT
  Sex: Male
  Weight: 90.8 kg

DRUGS (1)
  1. ESBRIET [Suspect]
     Active Substance: PIRFENIDONE
     Indication: IDIOPATHIC PULMONARY FIBROSIS
     Dosage: 3 CAPSULES THRICE A DAY, TOTAL 2403 MG PER DAY
     Route: 048
     Dates: start: 20150710

REACTIONS (3)
  - Asthenia [Recovering/Resolving]
  - Infection [Unknown]
  - Pleural effusion [Unknown]
